FAERS Safety Report 15121241 (Version 1)
Quarter: 2018Q3

REPORT INFORMATION
  Report Type: Spontaneous
  Country: US (occurrence: US)
  Receive Date: 20180613
  Receipt Date: 20180613
  Transmission Date: 20181010
  Serious: No
  Sender: FDA-Public Use
  Company Number: None

PATIENT
  Age: 25 Year
  Sex: Male

DRUGS (3)
  1. LEVETIRACETAM. [Concomitant]
     Active Substance: LEVETIRACETAM
  2. TOPIRAMATE. [Concomitant]
     Active Substance: TOPIRAMATE
  3. TEMOZOLOMIDE 180MG CAP [Suspect]
     Active Substance: TEMOZOLOMIDE
     Dosage: ?          OTHER FREQUENCY:OTHER;?07/20/2017 TO 17?JUN?2018?
     Route: 048
     Dates: start: 20170720, end: 201806

REACTIONS (1)
  - Alopecia [None]

NARRATIVE: CASE EVENT DATE: 20180506
